FAERS Safety Report 9432483 (Version 1)
Quarter: 2013Q3

REPORT INFORMATION
  Report Type: Spontaneous
  Country: US (occurrence: None)
  Receive Date: 20130730
  Receipt Date: 20130730
  Transmission Date: 20140515
  Serious: Yes (Other)
  Sender: FDA-Public Use
  Company Number: None

PATIENT
  Sex: 0

DRUGS (6)
  1. LORAZEPAM [Suspect]
     Indication: DEPRESSION
     Dosage: ORAL  (047)
     Route: 048
  2. PROMETHAZINE [Concomitant]
  3. OXYCODINE IR [Concomitant]
  4. EFFEXOR ER [Concomitant]
  5. TRAZODONE [Concomitant]
  6. ZENAFLEX [Concomitant]

REACTIONS (5)
  - Muscle spasms [None]
  - Convulsion [None]
  - Blood glucose increased [None]
  - Suicide attempt [None]
  - Incorrect dose administered [None]
